FAERS Safety Report 13260558 (Version 1)
Quarter: 2017Q1

REPORT INFORMATION
  Report Type: Spontaneous
  Country: US (occurrence: US)
  Receive Date: 20170221
  Receipt Date: 20170221
  Transmission Date: 20170428
  Serious: Yes (Other)
  Sender: FDA-Public Use
  Company Number: None

PATIENT
  Age: 56 Year
  Sex: Female

DRUGS (7)
  1. ALBUTEROL. [Concomitant]
     Active Substance: ALBUTEROL
  2. DOCUSATE [Concomitant]
     Active Substance: DOCUSATE
  3. ZIPRASIDONE. [Concomitant]
     Active Substance: ZIPRASIDONE
  4. BENZONATATE. [Concomitant]
     Active Substance: BENZONATATE
  5. MONTELUKAST [Concomitant]
     Active Substance: MONTELUKAST SODIUM
  6. DIPHENHYDRAMINE. [Concomitant]
     Active Substance: DIPHENHYDRAMINE
  7. LURASIDONE [Suspect]
     Active Substance: LURASIDONE
     Indication: BIPOLAR DISORDER
     Route: 048
     Dates: start: 20161218, end: 20161223

REACTIONS (1)
  - Angioedema [None]

NARRATIVE: CASE EVENT DATE: 20161223
